FAERS Safety Report 9413491 (Version 1)
Quarter: 2013Q3

REPORT INFORMATION
  Report Type: Spontaneous
  Country: NO (occurrence: NO)
  Receive Date: 20130722
  Receipt Date: 20130722
  Transmission Date: 20140515
  Serious: Yes (Life-Threatening, Hospitalization)
  Sender: FDA-Public Use
  Company Number: NO-PFIZER INC-2013212742

PATIENT
  Age: 89 Year
  Sex: Female

DRUGS (4)
  1. ZOLOFT [Suspect]
     Indication: DEPRESSION
     Dosage: 150 MG, 1X/DAY
     Route: 048
  2. PINEX FORTE [Concomitant]
     Dosage: 1 DF, THREE TIMES A DAY
     Route: 048
  3. SOBRIL [Concomitant]
     Dosage: 15MG THREE TIMES A DAY
     Route: 048
  4. IMOVANE [Concomitant]
     Dosage: 7.5MG ONCE DAILY
     Route: 048

REACTIONS (6)
  - Pneumonia [Recovering/Resolving]
  - Pulmonary embolism [Recovering/Resolving]
  - Respiratory failure [Recovering/Resolving]
  - Hypercapnia [Recovering/Resolving]
  - Fall [Recovering/Resolving]
  - Dizziness [Recovering/Resolving]
